FAERS Safety Report 17047568 (Version 1)
Quarter: 2019Q4

REPORT INFORMATION
  Report Type: Spontaneous
  Country: DE (occurrence: DE)
  Receive Date: 20191119
  Receipt Date: 20191119
  Transmission Date: 20200122
  Serious: Yes (Hospitalization, Other)
  Sender: FDA-Public Use
  Company Number: DE-PFIZER INC-2019425150

PATIENT
  Age: 83 Year
  Sex: Male

DRUGS (2)
  1. CORTISON [Suspect]
     Active Substance: CORTISONE ACETATE
     Indication: POLYMYALGIA RHEUMATICA
     Dosage: UNK
     Dates: start: 2017
  2. METHOTREXATE SODIUM. [Suspect]
     Active Substance: METHOTREXATE SODIUM
     Indication: POLYMYALGIA RHEUMATICA
     Dosage: UNK

REACTIONS (5)
  - Product use in unapproved indication [Unknown]
  - Carcinoembryonic antigen increased [Not Recovered/Not Resolved]
  - Condition aggravated [Not Recovered/Not Resolved]
  - Off label use [Unknown]
  - Tumour marker increased [Not Recovered/Not Resolved]

NARRATIVE: CASE EVENT DATE: 2017
